FAERS Safety Report 6197524-6 (Version None)
Quarter: 2009Q2

REPORT INFORMATION
  Report Type: 
  Country: None (occurrence: None)
  Receive Date: 20090521
  Receipt Date: 20090514
  Transmission Date: 20091009
  Serious: Yes (Hospitalization)
  Sender: FDA-Public Use
  Company Number: IE-BIOGENIDEC-2008BI025695

PATIENT
  Age: 50 Year
  Sex: Female
  Weight: 58 kg

DRUGS (7)
  1. TYSABRI [Suspect]
     Indication: MULTIPLE SCLEROSIS
     Route: 042
     Dates: start: 20070928
  2. FOLIC ACID [Concomitant]
  3. LEVETERACITAM [Concomitant]
  4. CITALOPRAM HYDROBROMIDE [Concomitant]
  5. LAMOTRIGINE [Concomitant]
  6. THIAMINE HCL [Concomitant]
  7. OLANZAPINE [Concomitant]

REACTIONS (2)
  - PNEUMONIA ASPIRATION [None]
  - STATUS EPILEPTICUS [None]
